FAERS Safety Report 7286703-2 (Version None)
Quarter: 2011Q1

REPORT INFORMATION
  Report Type: 
  Country: None (occurrence: None)
  Receive Date: 20110210
  Receipt Date: 20110131
  Transmission Date: 20110831
  Serious: Yes (Hospitalization, Other)
  Sender: FDA-Public Use
  Company Number: US-ELI_LILLY_AND_COMPANY-US201102000320

PATIENT
  Sex: Female

DRUGS (13)
  1. SIMVASTATIN [Concomitant]
  2. MYOFLEX [Concomitant]
  3. CALCIUM [Concomitant]
  4. VITAMIN D [Concomitant]
  5. MULTI-VITAMIN [Concomitant]
  6. PANTOPRAZOLE [Concomitant]
  7. TYLENOL                                 /SCH/ [Concomitant]
  8. SPIRIVA [Concomitant]
  9. FORTEO [Suspect]
     Indication: OSTEOPOROSIS
     Dosage: 20 UG, DAILY (1/D)
     Dates: start: 20100101
  10. OXYGEN [Concomitant]
  11. TRAMADOL HCL [Concomitant]
  12. LEXAPRO [Concomitant]
  13. ASPIRIN [Concomitant]

REACTIONS (11)
  - NAUSEA [None]
  - BALANCE DISORDER [None]
  - DRUG DOSE OMISSION [None]
  - PAIN IN EXTREMITY [None]
  - MALAISE [None]
  - FALL [None]
  - HIP FRACTURE [None]
  - ARTHRALGIA [None]
  - GROIN PAIN [None]
  - MEMORY IMPAIRMENT [None]
  - RIB FRACTURE [None]
